FAERS Safety Report 14416504 (Version 5)
Quarter: 2019Q1

REPORT INFORMATION
  Report Type: Spontaneous
  Country: FR (occurrence: FR)
  Receive Date: 20180122
  Receipt Date: 20190130
  Transmission Date: 20190417
  Serious: Yes (Other)
  Sender: FDA-Public Use
  Company Number: FR-AUROBINDO-AUR-APL-2018-002434

PATIENT

DRUGS (14)
  1. TRAMADOL. [Suspect]
     Active Substance: TRAMADOL
     Route: 065
  2. CLOZAPINE. [Interacting]
     Active Substance: CLOZAPINE
     Indication: ABNORMAL BEHAVIOUR
     Dosage: INCREASE IN THE DOSAGE UP TO 25 MG/D ()
  3. CLOZAPINE. [Interacting]
     Active Substance: CLOZAPINE
     Dosage: INCREASE IN THE DOSAGE UP TO 25 MG/D ()
  4. ALLOPURINOL. [Interacting]
     Active Substance: ALLOPURINOL
     Indication: PRODUCT USED FOR UNKNOWN INDICATION
     Dosage: UNK
     Route: 065
  5. CLOZAPINE. [Interacting]
     Active Substance: CLOZAPINE
     Indication: DEMENTIA ALZHEIMER^S TYPE
     Dosage: 25 MILLIGRAM
     Route: 065
  6. GOSERELIN [Interacting]
     Active Substance: GOSERELIN
     Indication: PROSTATE CANCER
     Dosage: ()
  7. BISOPROLOL [Concomitant]
     Active Substance: BISOPROLOL
     Indication: PRODUCT USED FOR UNKNOWN INDICATION
     Dosage: UNK
     Route: 065
  8. BICALUTAMIDE. [Interacting]
     Active Substance: BICALUTAMIDE
     Indication: PROSTATE CANCER
     Dosage: UNK
     Route: 065
  9. CLOZAPINE. [Interacting]
     Active Substance: CLOZAPINE
     Dosage: \
  10. GOSERELIN [Interacting]
     Active Substance: GOSERELIN
     Indication: ANDROGEN THERAPY
     Dosage: UNK
     Route: 065
  11. TRAZODONE [Suspect]
     Active Substance: TRAZODONE HYDROCHLORIDE
     Indication: ABNORMAL BEHAVIOUR
     Dosage: UNK
     Route: 065
  12. CLOZAPINE. [Interacting]
     Active Substance: CLOZAPINE
     Indication: ABNORMAL BEHAVIOUR
     Dosage: UNK
     Route: 065
  13. ACETYLSALICYLIC ACID [Concomitant]
     Active Substance: ASPIRIN
     Indication: PRODUCT USED FOR UNKNOWN INDICATION
     Route: 065
  14. ATORVASTATIN [Concomitant]
     Active Substance: ATORVASTATIN
     Indication: PRODUCT USED FOR UNKNOWN INDICATION
     Dosage: UNK
     Route: 065

REACTIONS (2)
  - Drug interaction [Recovered/Resolved]
  - Electrocardiogram QT prolonged [Recovered/Resolved]
